FAERS Safety Report 16288980 (Version 1)
Quarter: 2019Q2

REPORT INFORMATION
  Report Type: Spontaneous
  Country: US (occurrence: US)
  Receive Date: 20190509
  Receipt Date: 20190509
  Transmission Date: 20190711
  Serious: Yes (Other)
  Sender: FDA-Public Use
  Company Number: US-SA-2019SA126369

PATIENT
  Age: 59 Year
  Sex: Female

DRUGS (11)
  1. PROCARDIA [NIFEDIPINE] [Concomitant]
  2. B COMPLEX [VITAMIN B COMPLEX] [Concomitant]
     Dosage: UNK
  3. ISOSORBIDE DINITRATE. [Concomitant]
     Active Substance: ISOSORBIDE DINITRATE
  4. LEVOTHYROXIN [Concomitant]
     Active Substance: LEVOTHYROXINE
  5. PRALUENT [Suspect]
     Active Substance: ALIROCUMAB
     Dosage: 75 MG/ML, QOW
     Route: 058
  6. HYDRALAZINE [Concomitant]
     Active Substance: HYDRALAZINE HYDROCHLORIDE
  7. COREG [Concomitant]
     Active Substance: CARVEDILOL
  8. NIFEDIPINE. [Concomitant]
     Active Substance: NIFEDIPINE
  9. VITAMIN D NOS [Concomitant]
     Active Substance: VITAMIN D NOS
  10. AURYXIA [Concomitant]
     Active Substance: TETRAFERRIC TRICITRATE DECAHYDRATE
  11. CATAPRES [Concomitant]
     Active Substance: CLONIDINE HYDROCHLORIDE

REACTIONS (1)
  - Peritonitis [Unknown]
